FAERS Safety Report 7492347-X (Version None)
Quarter: 2011Q2

REPORT INFORMATION
  Report Type: 
  Country: None (occurrence: None)
  Receive Date: 20110519
  Receipt Date: 20110516
  Transmission Date: 20111010
  Serious: Yes (Congenital Anomaly, Other)
  Sender: FDA-Public Use
  Company Number: US-PFIZER INC-2011104669

PATIENT
  Sex: Male
  Weight: 3.9 kg

DRUGS (1)
  1. ZOLOFT [Suspect]
     Dosage: UNK
     Route: 064

REACTIONS (5)
  - READING DISORDER [None]
  - DRUG EXPOSURE DURING PREGNANCY [None]
  - HYPERTELORISM OF ORBIT [None]
  - CRANIOSYNOSTOSIS [None]
  - CONVULSION [None]
